FAERS Safety Report 25017786 (Version 1)
Quarter: 2025Q1

REPORT INFORMATION
  Report Type: Spontaneous
  Country: US (occurrence: None)
  Receive Date: 20250226
  Receipt Date: 20250226
  Transmission Date: 20250408
  Serious: Yes (Life-Threatening, Hospitalization, Disabling)
  Sender: FDA-CTU
  Company Number: None

PATIENT
  Age: 44 Year
  Sex: Female
  Weight: 63 kg

DRUGS (12)
  1. INJECTAFER [Suspect]
     Active Substance: FERRIC CARBOXYMALTOSE
     Indication: Anaemia
     Dates: start: 20240709, end: 20240709
  2. phosphorous packets [Concomitant]
  3. EMGALITY [Concomitant]
     Active Substance: GALCANEZUMAB-GNLM
  4. UBRELVY [Concomitant]
     Active Substance: UBROGEPANT
  5. FLURBIPROFEN [Concomitant]
     Active Substance: FLURBIPROFEN
  6. ZOFRAN [Concomitant]
     Active Substance: ONDANSETRON HYDROCHLORIDE
  7. MIRALAX [Concomitant]
     Active Substance: POLYETHYLENE GLYCOL 3350
  8. VITAMIN D [Concomitant]
     Active Substance: VITAMIN D NOS
  9. B12 [Concomitant]
  10. FOLIC ACID [Concomitant]
     Active Substance: FOLIC ACID
  11. TYLENOL [Concomitant]
     Active Substance: ACETAMINOPHEN
  12. ADVIL [Concomitant]
     Active Substance: IBUPROFEN

REACTIONS (8)
  - Hypophosphataemia [None]
  - Gait inability [None]
  - Electrolyte imbalance [None]
  - Histone antibody positive [None]
  - Muscle twitching [None]
  - Flushing [None]
  - Feeling abnormal [None]
  - Cardiac disorder [None]

NARRATIVE: CASE EVENT DATE: 20240709
